FAERS Safety Report 20539728 (Version 1)
Quarter: 2022Q1

REPORT INFORMATION
  Report Type: Other
  Country: None (occurrence: US)
  Receive Date: 20220302
  Receipt Date: 20220302
  Transmission Date: 20220423
  Serious: Yes (Hospitalization)
  Sender: FDA-Public Use
  Company Number: US-Daewoong Pharmaceutical Co., Ltd.-2126367

PATIENT
  Age: 55 Year
  Sex: Female
  Weight: 52.2 kg

DRUGS (26)
  1. MEROPENEM [Suspect]
     Active Substance: MEROPENEM
     Indication: Pathogen resistance
  2. ERTAPENEM. [Suspect]
     Active Substance: ERTAPENEM SODIUM
  3. BACLOFEN [Suspect]
     Active Substance: BACLOFEN
  4. ALPRAZOLAM [Suspect]
     Active Substance: ALPRAZOLAM
  5. CLONAZEPAM [Suspect]
     Active Substance: CLONAZEPAM
  6. GABAPENTIN [Concomitant]
     Active Substance: GABAPENTIN
  7. BUPROPION [Concomitant]
     Active Substance: BUPROPION
  8. ESCITALOPRAM [Concomitant]
     Active Substance: ESCITALOPRAM OXALATE
  9. MEMANTINE [Concomitant]
     Active Substance: MEMANTINE
  10. MODAFINIL [Concomitant]
     Active Substance: MODAFINIL
  11. ASCORBIC ACID [Concomitant]
     Active Substance: ASCORBIC ACID
  12. LUBIPROSTONE [Concomitant]
     Active Substance: LUBIPROSTONE
  13. CEPHALEXIN [Concomitant]
     Active Substance: CEPHALEXIN
  14. CALCIUM CARBONATE WITH VITAMIN D (CHOLECALCIFEROL) [Concomitant]
     Active Substance: CALCIUM CARBONATE\CHOLECALCIFEROL
  15. CRANBERRY [Concomitant]
     Active Substance: CRANBERRY
  16. DESMOPRESSIN [Concomitant]
     Active Substance: DESMOPRESSIN
  17. ACETAMINOPHEN\HYDROCODONE [Concomitant]
     Active Substance: ACETAMINOPHEN\HYDROCODONE
  18. OCRELIZUMAB [Concomitant]
     Active Substance: OCRELIZUMAB
  19. ONDANSETRON [Concomitant]
     Active Substance: ONDANSETRON
  20. OXYBUTYNIN. [Concomitant]
     Active Substance: OXYBUTYNIN CHLORIDE
  21. TRAZODONE [Concomitant]
     Active Substance: TRAZODONE HYDROCHLORIDE
  22. VITAMIN E [Concomitant]
     Active Substance: .ALPHA.-TOCOPHEROL
  23. CEFTRIAXONE [Concomitant]
     Active Substance: CEFTRIAXONE
  24. VANCOMYCIN [Concomitant]
     Active Substance: VANCOMYCIN
  25. ESCITALOPRAM [Concomitant]
     Active Substance: ESCITALOPRAM OXALATE
  26. DALFAMPRIDINE [Concomitant]
     Active Substance: DALFAMPRIDINE

REACTIONS (5)
  - Encephalopathy [Recovered/Resolved]
  - Muscle spasticity [Recovered/Resolved]
  - Neurotoxicity [Recovered/Resolved]
  - Condition aggravated [Recovered/Resolved]
  - Withdrawal syndrome [Recovered/Resolved]
